FAERS Safety Report 6124040-X (Version None)
Quarter: 2009Q1

REPORT INFORMATION
  Report Type: 
  Country: None (occurrence: None)
  Receive Date: 20090319
  Receipt Date: 20090310
  Transmission Date: 20090719
  Serious: Yes (Hospitalization)
  Sender: FDA-Public Use
  Company Number: PHHY2009MX09440

PATIENT
  Sex: Male

DRUGS (1)
  1. STALEVO 100 [Suspect]
     Indication: PARKINSON'S DISEASE
     Dosage: 3 DF, QD (150 L/37.5 C/200 E MG)
     Route: 048
     Dates: start: 20070801

REACTIONS (1)
  - GASTROINTESTINAL INFECTION [None]
